FAERS Safety Report 7914739-4 (Version None)
Quarter: 2011Q4

REPORT INFORMATION
  Report Type: 
  Country: None (occurrence: None)
  Receive Date: 20111115
  Receipt Date: 20111104
  Transmission Date: 20120403
  Serious: Yes (Hospitalization, Other)
  Sender: FDA-Public Use
  Company Number: PHHO2011DE11175

PATIENT
  Sex: Male
  Weight: 81.9 kg

DRUGS (5)
  1. BLINDED ALISKIREN [Suspect]
     Indication: CARDIAC FAILURE
     Dosage: CODE NOT BROKEN
     Route: 048
     Dates: start: 20101220, end: 20110716
  2. SPIRONOLACTONE [Suspect]
  3. HYDROCHLOROTHIAZIDE [Suspect]
  4. BLINDED NO TREATMENT RECEIVED [Suspect]
     Indication: CARDIAC FAILURE
     Dosage: CODE NOT BROKEN
     Route: 048
     Dates: start: 20101220, end: 20110716
  5. ENALAPRIL MALEATE [Suspect]
     Indication: CARDIAC FAILURE
     Dosage: CODE NOT BROKEN
     Route: 048
     Dates: start: 20101220, end: 20110716

REACTIONS (2)
  - SYNCOPE [None]
  - HYPERCALCAEMIA [None]
